FAERS Safety Report 20572735 (Version 1)
Quarter: 2022Q1

REPORT INFORMATION
  Report Type: Spontaneous
  Country: JP (occurrence: JP)
  Receive Date: 20220309
  Receipt Date: 20220309
  Transmission Date: 20220424
  Serious: Yes (Hospitalization)
  Sender: FDA-Public Use
  Company Number: JP-NOVARTISPH-NVSJ2021JP014863

PATIENT

DRUGS (8)
  1. AMOXICILLIN [Suspect]
     Active Substance: AMOXICILLIN
     Indication: Foetal exposure during pregnancy
     Dosage: UNK
     Route: 064
  2. ERYTHROMYCIN [Suspect]
     Active Substance: ERYTHROMYCIN
     Indication: Foetal exposure during pregnancy
     Route: 064
  3. METRONIDAZOLE [Suspect]
     Active Substance: METRONIDAZOLE
     Indication: Foetal exposure during pregnancy
     Route: 065
  4. BIO-THREE [Suspect]
     Active Substance: HERBALS
     Indication: Foetal exposure during pregnancy
     Route: 064
  5. RITODRINE HYDROCHLORIDE [Suspect]
     Active Substance: RITODRINE HYDROCHLORIDE
     Indication: Foetal exposure during pregnancy
     Route: 064
  6. NIFEDIPINE [Suspect]
     Active Substance: NIFEDIPINE
     Indication: Foetal exposure during pregnancy
     Route: 064
  7. RITODRINE HYDROCHLORIDE [Suspect]
     Active Substance: RITODRINE HYDROCHLORIDE
     Indication: Foetal exposure during pregnancy
     Route: 064
  8. MAGNESIUM SULFATE [Suspect]
     Active Substance: MAGNESIUM SULFATE
     Indication: Foetal exposure during pregnancy
     Route: 064

REACTIONS (3)
  - Neonatal respiratory distress syndrome [Unknown]
  - Premature baby [Unknown]
  - Foetal exposure during pregnancy [Unknown]
